FAERS Safety Report 4785646-3 (Version None)
Quarter: 2005Q3

REPORT INFORMATION
  Report Type: 
  Country: None (occurrence: None)
  Receive Date: 20050929
  Receipt Date: 20050919
  Transmission Date: 20060218
  Serious: Yes (Hospitalization, Other)
  Sender: FDA-Public Use
  Company Number: 2005109594

PATIENT
  Sex: Female
  Weight: 72.5755 kg

DRUGS (4)
  1. PROCARDIA [Suspect]
     Indication: HYPERTENSION
  2. PROCARDIA XL [Suspect]
     Indication: HYPERTENSION
     Dosage: BLOOD PRESSURE HIGH
  3. AMARYL [Concomitant]
  4. CENTRUM SILVER (ASCORBIC ACID, CALCIUM, MINERALS NOS, RETINOL, TOCOPHE [Concomitant]

REACTIONS (1)
  - CEREBROVASCULAR ACCIDENT [None]
